FAERS Safety Report 6601793-5 (Version None)
Quarter: 2010Q1

REPORT INFORMATION
  Report Type: 
  Country: None (occurrence: None)
  Receive Date: 20100225
  Receipt Date: 20100217
  Transmission Date: 20100710
  Serious: Yes (Hospitalization)
  Sender: FDA-Public Use
  Company Number: GXKR2010IL01935

PATIENT
  Age: 52 Year
  Sex: Male

DRUGS (1)
  1. DICLOFENAC (NGX) [Suspect]
     Indication: BACK PAIN
     Dosage: 75 MG, QD
     Route: 030

REACTIONS (6)
  - DEBRIDEMENT [None]
  - POSTOPERATIVE WOUND INFECTION [None]
  - RASH [None]
  - SKIN NECROSIS [None]
  - STAPHYLOCOCCAL INFECTION [None]
  - WOUND DEHISCENCE [None]
